FAERS Safety Report 4429770-3 (Version None)
Quarter: 2004Q3

REPORT INFORMATION
  Report Type: 
  Country: None (occurrence: None)
  Receive Date: 20040817
  Receipt Date: 20040817
  Transmission Date: 20050211
  Serious: Yes (Hospitalization)
  Sender: FDA-Public Use
  Company Number: None

PATIENT
  Age: 61 Year
  Sex: Female
  Weight: 51.9 kg

DRUGS (3)
  1. PACLITAXEL [Suspect]
     Indication: LUNG NEOPLASM MALIGNANT
     Dosage: 75 MG WEEKLY IV
     Route: 042
     Dates: start: 20040726
  2. CARBOPLATIN [Suspect]
     Indication: LUNG NEOPLASM MALIGNANT
     Dosage: 188 MG WEEKLEY IV
     Route: 042
     Dates: start: 20040726
  3. S 3304 [Suspect]
     Dosage: 1600 MG BID

REACTIONS (2)
  - BODY TEMPERATURE INCREASED [None]
  - HYPOTENSION [None]
